FAERS Safety Report 4596980-4 (Version None)
Quarter: 2005Q1

REPORT INFORMATION
  Report Type: 
  Country: None (occurrence: None)
  Receive Date: 20050228
  Receipt Date: 20040430
  Transmission Date: 20050727
  Serious: Yes (Hospitalization)
  Sender: FDA-Public Use
  Company Number: 7924

PATIENT
  Age: 72 Year
  Sex: Female

DRUGS (13)
  1. METHOTREXATE [Suspect]
     Indication: RHEUMATOID ARTHRITIS
     Dosage: 15 MG WEEKLY PO
     Route: 048
     Dates: start: 19940101
  2. CCI-779 [Suspect]
     Indication: RHEUMATOID ARTHRITIS
     Dosage: 4 MG DAILY PO
     Route: 048
     Dates: start: 20040309, end: 20040405
  3. CRESTOR [Concomitant]
  4. NORTRIPTYLINE HCL [Concomitant]
  5. FOLIC ACID [Concomitant]
  6. ASPIRIN [Concomitant]
  7. LOPRESSOR [Concomitant]
  8. MOBIC [Concomitant]
  9. NITRGLYCERIN TRANSDERMAL SYSTEM [Concomitant]
  10. PREDNISONE [Concomitant]
  11. VITAMIN E [Concomitant]
  12. PROTONIX [Concomitant]
  13. ZOCOR [Concomitant]

REACTIONS (4)
  - ALVEOLITIS [None]
  - INFECTION [None]
  - LEUKOPENIA [None]
  - MYELOID MATURATION ARREST [None]
